FAERS Safety Report 9128558 (Version 1)
Quarter: 2013Q1

REPORT INFORMATION
  Report Type: Spontaneous
  Country: US (occurrence: US)
  Receive Date: 20130125
  Receipt Date: 20130125
  Transmission Date: 20140127
  Serious: No
  Sender: FDA-Public Use
  Company Number: US-ASTRAZENECA-2004UW06065

PATIENT
  Age: 69 Year
  Sex: Female
  Weight: 96.2 kg

DRUGS (12)
  1. CRESTOR [Suspect]
     Indication: BLOOD CHOLESTEROL INCREASED
     Route: 048
  2. CRESTOR [Suspect]
     Indication: BLOOD CHOLESTEROL INCREASED
     Route: 048
     Dates: start: 201212
  3. ZETIA [Concomitant]
  4. ALTACE [Concomitant]
  5. HUMALOG [Concomitant]
  6. LANTUS [Concomitant]
  7. SYNTHROID [Concomitant]
  8. FISH OIL [Concomitant]
  9. LIPITOR [Concomitant]
  10. GABAPENTIN [Concomitant]
  11. BUDESONIDE [Concomitant]
  12. APIDRA [Concomitant]

REACTIONS (6)
  - Oedema peripheral [Unknown]
  - Fluid retention [Unknown]
  - Weight increased [Unknown]
  - Bronchitis [Unknown]
  - Pain in extremity [Unknown]
  - Muscle spasms [Unknown]
